FAERS Safety Report 5097141-5 (Version None)
Quarter: 2006Q3

REPORT INFORMATION
  Report Type: 
  Country: None (occurrence: None)
  Receive Date: 20060901
  Receipt Date: 20060824
  Transmission Date: 20061208
  Serious: Yes (Hospitalization, Other)
  Sender: FDA-Public Use
  Company Number: 163-21880-06080248

PATIENT
  Age: 80 Year
  Sex: Male
  Weight: 44.9061 kg

DRUGS (9)
  1. REVLIMID [Suspect]
     Indication: GLIOBLASTOMA
     Dosage: 15MG/M2 QDX21DAYS, QD X21 DAYS, ORAL
     Route: 048
     Dates: start: 20060727, end: 20060802
  2. COUMADIN [Concomitant]
  3. FLOMAX [Concomitant]
  4. KEPPRA [Concomitant]
  5. ATENOLOL [Concomitant]
  6. LIPITOR [Concomitant]
  7. COZAAR [Concomitant]
  8. NORVASC [Concomitant]
  9. ASPIRIN [Concomitant]

REACTIONS (10)
  - BALANCE DISORDER [None]
  - BILIRUBIN CONJUGATED INCREASED [None]
  - BLOOD ALKALINE PHOSPHATASE INCREASED [None]
  - BLOOD BILIRUBIN INCREASED [None]
  - DRUG TOXICITY [None]
  - GALLBLADDER DISORDER [None]
  - GALLBLADDER POLYP [None]
  - HYPONATRAEMIA [None]
  - PNEUMONIA [None]
  - SOMNOLENCE [None]
